FAERS Safety Report 18908427 (Version 3)
Quarter: 2021Q3

REPORT INFORMATION
  Report Type: Spontaneous
  Country: US (occurrence: US)
  Receive Date: 20210218
  Receipt Date: 20210729
  Transmission Date: 20211014
  Serious: No
  Sender: FDA-Public Use
  Company Number: US-IPSEN BIOPHARMACEUTICALS, INC.-2021-03652

PATIENT
  Age: 34 Year
  Sex: Female
  Weight: 49.89 kg

DRUGS (1)
  1. DYSPORT [Suspect]
     Active Substance: ABOBOTULINUMTOXINA
     Indication: SKIN WRINKLING
     Dosage: 50 IU
     Route: 030

REACTIONS (8)
  - Headache [Recovered/Resolved]
  - Injection site swelling [Recovered/Resolved]
  - Therapeutic response shortened [Unknown]
  - Malaise [Unknown]
  - Headache [Recovered/Resolved]
  - Injection site pain [Recovered/Resolved]
  - Nausea [Recovered/Resolved]
  - Injection site pain [Recovered/Resolved]

NARRATIVE: CASE EVENT DATE: 20210111
